FAERS Safety Report 7133585-5 (Version None)
Quarter: 2010Q4

REPORT INFORMATION
  Report Type: 
  Country: None (occurrence: None)
  Receive Date: 20101202
  Receipt Date: 20101129
  Transmission Date: 20110411
  Serious: Yes (Hospitalization, Disabling, Other)
  Sender: FDA-Public Use
  Company Number: JP-PFIZER INC-2010118989

PATIENT
  Age: 79 Year
  Sex: Male
  Weight: 62 kg

DRUGS (17)
  1. SILDENAFIL CITRATE [Suspect]
     Indication: PULMONARY ARTERIAL HYPERTENSION
     Dosage: 20 MG, 3X/DAY
     Route: 048
     Dates: start: 20100905, end: 20101129
  2. TRACLEER [Suspect]
     Indication: PULMONARY HYPERTENSION
     Dosage: 6.25 MG, 2X/DAY
     Route: 048
     Dates: start: 20100907, end: 20100917
  3. BAKTAR [Suspect]
     Indication: ANTIFUNGAL PROPHYLAXIS
     Dosage: 2 DF, 2X/DAY
     Route: 048
     Dates: start: 20100915, end: 20100917
  4. TAKEPRON [Suspect]
     Indication: PROPHYLAXIS
     Dosage: 15 MG, 1X/DAY
     Route: 048
     Dates: start: 20100101, end: 20100917
  5. ISCOTIN [Suspect]
     Indication: ANTIBIOTIC PROPHYLAXIS
     Dosage: 100 G, 1X/DAY
     Route: 048
     Dates: start: 20100910, end: 20100917
  6. SEROQUEL [Suspect]
     Indication: RESTLESSNESS
     Dosage: 100 MG, 1X/DAY
     Route: 048
     Dates: start: 20100901
  7. SEROQUEL [Suspect]
     Indication: DELIRIUM
     Dosage: 50 MG, 1X/DAY
     Route: 048
     Dates: start: 20100901
  8. DAI-KENCHU-TO [Suspect]
     Indication: DYSPEPSIA
     Dosage: 5 G, 3X/DAY
     Route: 048
     Dates: start: 20100906, end: 20100917
  9. RISPERDAL [Suspect]
     Indication: RESTLESSNESS
     Dosage: 0.5 MG, 2X/DAY
     Route: 048
     Dates: start: 20100903, end: 20100917
  10. RISPERDAL [Suspect]
     Indication: DELIRIUM
  11. WARFARIN [Suspect]
     Indication: PULMONARY EMBOLISM
     Dosage: 5 MG, 1X/DAY
     Route: 048
     Dates: start: 20100915
  12. BERAPROST SODIUM [Suspect]
     Indication: PULMONARY ARTERIAL HYPERTENSION
     Dosage: 60 UG, 2X/DAY
     Route: 048
     Dates: start: 20100915, end: 20100917
  13. DIGOXIN [Suspect]
     Indication: ATRIAL FIBRILLATION
     Dosage: 0.125 MG, 1X/DAY
     Route: 048
     Dates: start: 20100916
  14. MAINTATE [Concomitant]
     Indication: CARDIAC FAILURE
     Dosage: 2.5 MG, 1X/DAY
     Route: 048
     Dates: start: 20100901, end: 20100902
  15. OMEPRAL [Concomitant]
     Indication: PROPHYLAXIS AGAINST GASTROINTESTINAL ULCER
     Dosage: 20 MG, 2X/DAY
     Route: 041
     Dates: start: 20100917
  16. SEVEN EP [Concomitant]
     Dosage: 1 DF, 3X/DAY
     Route: 048
     Dates: start: 20100101, end: 20100830
  17. GASMOTIN [Concomitant]
     Dosage: 5 MG, 3X/DAY
     Route: 048
     Dates: start: 20100101, end: 20100830

REACTIONS (3)
  - ALANINE AMINOTRANSFERASE INCREASED [None]
  - ASPARTATE AMINOTRANSFERASE INCREASED [None]
  - RESPIRATORY FAILURE [None]
